FAERS Safety Report 8973727 (Version 2)
Quarter: 2013Q1

REPORT INFORMATION
  Report Type: Spontaneous
  Country: US (occurrence: US)
  Receive Date: 20121218
  Receipt Date: 20130103
  Transmission Date: 20140127
  Serious: Yes (Other)
  Sender: FDA-Public Use
  Company Number: US-ALEXION PHARMACEUTICALS INC.-A201202335

PATIENT
  Sex: Male
  Weight: 113.38 kg

DRUGS (9)
  1. SOLIRIS 300MG [Suspect]
     Indication: TRANSPLANT REJECTION
     Dosage: 900 MG, UNK
     Route: 042
     Dates: start: 20110323
  2. SOLIRIS 300MG [Suspect]
     Indication: OFF LABEL USE
     Dosage: 600 MG, UNK
     Route: 042
     Dates: start: 20110325
  3. SOLIRIS 300MG [Suspect]
     Dosage: 600 MG, UNK
     Route: 042
     Dates: start: 20110327
  4. SOLIRIS 300MG [Suspect]
     Dosage: 600 MG, UNK
     Dates: start: 20110329
  5. SOLIRIS 300MG [Suspect]
     Dosage: 900 MG, UNK
     Route: 042
     Dates: start: 20110331
  6. SOLIRIS 300MG [Suspect]
     Dosage: 900 MG, UNK
     Route: 042
     Dates: start: 20110407
  7. SOLIRIS 300MG [Suspect]
     Dosage: 900 MG, UNK
     Route: 042
     Dates: start: 20110414
  8. IMMUNOGLOBULIN [Concomitant]
  9. RITUXIMAB [Concomitant]
     Dosage: PRE-TRANSPLANTATION, SINGLE

REACTIONS (1)
  - Thrombotic microangiopathy [Recovered/Resolved with Sequelae]
